FAERS Safety Report 5363563-8 (Version None)
Quarter: 2007Q2

REPORT INFORMATION
  Report Type: 
  Country: None (occurrence: None)
  Receive Date: 20070620
  Receipt Date: 20070608
  Transmission Date: 20071010
  Serious: Yes (Other)
  Sender: FDA-Public Use
  Company Number: ES-AMGEN-UK229318

PATIENT
  Sex: Male

DRUGS (1)
  1. KINERET [Suspect]
     Indication: JUVENILE ARTHRITIS
     Dates: start: 20060502, end: 20060522

REACTIONS (1)
  - SCARLET FEVER [None]
